FAERS Safety Report 22240082 (Version 1)
Quarter: 2023Q2

REPORT INFORMATION
  Report Type: Spontaneous
  Country: US (occurrence: US)
  Receive Date: 20230421
  Receipt Date: 20230421
  Transmission Date: 20230721
  Serious: Yes (Other)
  Sender: FDA-Public Use
  Company Number: US-drreddys-SPO/USA/23/0163817

PATIENT
  Age: 44 Year
  Sex: Female

DRUGS (1)
  1. ACCUTANE [Suspect]
     Active Substance: ISOTRETINOIN
     Indication: Product used for unknown indication
     Dosage: RMA ISSUE DATE: 24 JANUARY 2023 04:31:30 PM, 27 FEBRUARY 2023 07:43:00 PM,28 MARCH 2023 11:50:11 AM.

REACTIONS (1)
  - Mood altered [Unknown]
